FAERS Safety Report 5469632-6 (Version None)
Quarter: 2007Q3

REPORT INFORMATION
  Report Type: 
  Country: None (occurrence: None)
  Receive Date: 20070925
  Receipt Date: 20070925
  Transmission Date: 20080115
  Serious: Yes (Hospitalization)
  Sender: FDA-Public Use
  Company Number: None

PATIENT
  Age: 40 Year
  Sex: Female

DRUGS (4)
  1. ETHYOL [Suspect]
     Indication: PROPHYLAXIS
     Dosage: 500MG 5 TIMES PER WEEK SQ
     Route: 058
     Dates: start: 20070123, end: 20070205
  2. ETHYOL [Suspect]
     Indication: RADIOTHERAPY
     Dosage: 500MG 5 TIMES PER WEEK SQ
     Route: 058
     Dates: start: 20070123, end: 20070205
  3. TAXOL [Concomitant]
  4. CARBOPLATIN [Concomitant]

REACTIONS (4)
  - INJECTION SITE RASH [None]
  - PYREXIA [None]
  - RASH MACULO-PAPULAR [None]
  - RASH PRURITIC [None]
